FAERS Safety Report 11082800 (Version 2)
Quarter: 2015Q2

REPORT INFORMATION
  Report Type: Report from Study
  Country: GB (occurrence: GB)
  Receive Date: 20150501
  Receipt Date: 20150504
  Transmission Date: 20150821
  Serious: Yes (Death)
  Sender: FDA-Public Use
  Company Number: GB-AMGEN-GBRSP2015042010

PATIENT
  Age: 68 Year
  Sex: Female
  Weight: 70.3 kg

DRUGS (1)
  1. CARFILZOMIB [Suspect]
     Active Substance: CARFILZOMIB
     Indication: DISEASE PROGRESSION
     Route: 065

REACTIONS (2)
  - Metastases to meninges [Fatal]
  - Disease progression [Fatal]

NARRATIVE: CASE EVENT DATE: 20141229
